FAERS Safety Report 5656654-5 (Version None)
Quarter: 2008Q1

REPORT INFORMATION
  Report Type: 
  Country: None (occurrence: None)
  Receive Date: 20080219
  Receipt Date: 20071206
  Transmission Date: 20080703
  Serious: No
  Sender: FDA-Public Use
  Company Number: WAES 0712USA02098

PATIENT
  Age: 81 Year
  Sex: Female

DRUGS (4)
  1. JANUVIA [Suspect]
     Indication: TYPE 1 DIABETES MELLITUS
     Dosage: 100 MG/DAILY/PO ; 50 MG/DAILY/PO
     Route: 048
     Dates: start: 20070501, end: 20071101
  2. JANUVIA [Suspect]
     Indication: TYPE 1 DIABETES MELLITUS
     Dosage: 100 MG/DAILY/PO ; 50 MG/DAILY/PO
     Route: 048
     Dates: start: 20071115
  3. MICARDIS [Concomitant]
  4. INSULIN [Concomitant]

REACTIONS (1)
  - MUSCLE SPASMS [None]
